FAERS Safety Report 12681615 (Version 1)
Quarter: 2016Q3

REPORT INFORMATION
  Report Type: Spontaneous
  Country: JP (occurrence: JP)
  Receive Date: 20160824
  Receipt Date: 20160824
  Transmission Date: 20161109
  Serious: Yes (Hospitalization, Other)
  Sender: FDA-Public Use
  Company Number: JP-TEVA-685275ISR

PATIENT
  Age: 87 Year
  Sex: Female

DRUGS (7)
  1. BENET 75 MG [Suspect]
     Active Substance: RISEDRONIC ACID
     Indication: OSTEOPOROSIS
     Route: 048
     Dates: start: 20160320
  2. NI (BROMELAIN/TOCOPHEROL ACETATE) [Concomitant]
     Indication: HAEMORRHOIDS
     Dosage: 3 DOSAGE FORMS DAILY;
     Route: 048
     Dates: start: 20100910
  3. MAGMITT [Concomitant]
     Active Substance: MAGNESIUM OXIDE
     Indication: HAEMORRHOIDS
     Dosage: 990 MILLIGRAM DAILY;
     Route: 048
     Dates: start: 20100910
  4. NI (FAMOTIDINE) [Concomitant]
     Dosage: 1 DOSAGE FORMS DAILY;
     Route: 048
     Dates: end: 20160323
  5. BORRAZA-G [Concomitant]
     Active Substance: LIDOCAINE\TRIBENOSIDE
     Indication: HAEMORRHOIDS
     Dosage: 1 DOSAGE FORMS DAILY;
     Dates: start: 20100910
  6. NORVASC [Concomitant]
     Active Substance: AMLODIPINE BESYLATE
     Dosage: .5 MILLIGRAM DAILY;
     Route: 048
  7. NI (LOXOPROFEN SODIUM HYDRATE) [Concomitant]
     Dosage: 1 DOSAGE FORMS DAILY;
     Route: 048
     Dates: end: 20160323

REACTIONS (9)
  - Myositis [Recovered/Resolved]
  - Back pain [None]
  - Fall [Recovered/Resolved]
  - Blood potassium decreased [Recovered/Resolved]
  - Dyspnoea [Unknown]
  - Movement disorder [Unknown]
  - Pain [Recovered/Resolved]
  - C-reactive protein increased [Recovered/Resolved]
  - Blood creatine phosphokinase increased [Recovered/Resolved]

NARRATIVE: CASE EVENT DATE: 20160321
